FAERS Safety Report 4297398-4 (Version None)
Quarter: 2004Q1

REPORT INFORMATION
  Report Type: 
  Country: None (occurrence: None)
  Receive Date: 20040217
  Receipt Date: 20040217
  Transmission Date: 20041129
  Serious: Yes (Hospitalization)
  Sender: FDA-Public Use
  Company Number: None

PATIENT
  Sex: Female
  Weight: 53.978 kg

DRUGS (3)
  1. COUMADIN [Suspect]
     Indication: ATRIAL FIBRILLATION
     Dosage: PO [PRIOR TO ADMISSION]
     Route: 048
  2. LOPRESSOR [Concomitant]
  3. DIGOXIN [Concomitant]

REACTIONS (6)
  - ANAEMIA [None]
  - COAGULOPATHY [None]
  - EPIGASTRIC DISCOMFORT [None]
  - GASTROINTESTINAL HAEMORRHAGE [None]
  - HAEMATEMESIS [None]
  - MELAENA [None]
